FAERS Safety Report 4416100-6 (Version None)
Quarter: 2004Q3

REPORT INFORMATION
  Report Type: 
  Country: None (occurrence: None)
  Receive Date: 20040802
  Receipt Date: 20040720
  Transmission Date: 20050211
  Serious: Yes (Other)
  Sender: FDA-Public Use
  Company Number: 2004049506

PATIENT
  Sex: Female

DRUGS (2)
  1. DOXYCYCLINE [Suspect]
     Indication: ILL-DEFINED DISORDER
  2. DOXYCYCLIN HYCLATE (DOXYCYCLINE HYCLATE) [Suspect]
     Indication: PERIODONTAL DISEASE
     Dosage: 20 MG (20 MG, 1 IN 1 D), ORAL
     Route: 048
     Dates: start: 20040621, end: 20040626

REACTIONS (6)
  - ANOREXIA [None]
  - ANXIETY [None]
  - CONFUSIONAL STATE [None]
  - LETHARGY [None]
  - SCREAMING [None]
  - SOMNOLENCE [None]
